FAERS Safety Report 6001339-9 (Version None)
Quarter: 2008Q4

REPORT INFORMATION
  Report Type: 
  Country: None (occurrence: None)
  Receive Date: 20081215
  Receipt Date: 20081212
  Transmission Date: 20090506
  Serious: Yes (Death, Other)
  Sender: FDA-Public Use
  Company Number: PHBS2008FR06661

PATIENT
  Age: 54 Year
  Sex: Female

DRUGS (2)
  1. CYCLOSPORINE [Suspect]
     Indication: STEM CELL TRANSPLANT
  2. PREDNISONE TAB [Suspect]

REACTIONS (6)
  - ACUTE GRAFT VERSUS HOST DISEASE [None]
  - CYTOMEGALOVIRUS INFECTION [None]
  - HYPERVENTILATION [None]
  - PYREXIA [None]
  - RESPIRATORY DISTRESS [None]
  - TOXOPLASMOSIS [None]
